FAERS Safety Report 12334647 (Version 1)
Quarter: 2016Q2

REPORT INFORMATION
  Report Type: Spontaneous
  Country: US (occurrence: US)
  Receive Date: 20160504
  Receipt Date: 20160504
  Transmission Date: 20160815
  Serious: Yes (Death, Hospitalization, Other)
  Sender: FDA-Public Use
  Company Number: US-NORTHSTAR HEALTHCARE HOLDINGS-US-2016NSR001395

PATIENT

DRUGS (1)
  1. ALLOPURINOL. [Suspect]
     Active Substance: ALLOPURINOL
     Indication: TUMOUR LYSIS SYNDROME
     Dosage: UNK

REACTIONS (8)
  - Pulseless electrical activity [Fatal]
  - Cardiomyopathy [Fatal]
  - Drug reaction with eosinophilia and systemic symptoms [Unknown]
  - Dyspnoea [Unknown]
  - Cardiomegaly [Fatal]
  - Hypereosinophilic syndrome [Not Recovered/Not Resolved]
  - Pulmonary oedema [Unknown]
  - Rash [Unknown]
